FAERS Safety Report 7370831-7 (Version None)
Quarter: 2011Q1

REPORT INFORMATION
  Report Type: 
  Country: None (occurrence: None)
  Receive Date: 20110324
  Receipt Date: 20110315
  Transmission Date: 20110831
  Serious: No
  Sender: FDA-Public Use
  Company Number: US-BIOGENIDEC-2010BI023538

PATIENT
  Sex: Female

DRUGS (3)
  1. AVONEX [Concomitant]
     Indication: MULTIPLE SCLEROSIS
     Route: 030
  2. TYSABRI [Suspect]
     Route: 042
     Dates: start: 20080812, end: 20101231
  3. TYSABRI [Suspect]
     Indication: MULTIPLE SCLEROSIS
     Route: 042
     Dates: start: 20061003, end: 20080212

REACTIONS (9)
  - MEMORY IMPAIRMENT [None]
  - MULTIPLE SCLEROSIS [None]
  - ASTHENIA [None]
  - INFLUENZA LIKE ILLNESS [None]
  - GENERAL SYMPTOM [None]
  - EMOTIONAL DISORDER [None]
  - MUSCULOSKELETAL DISORDER [None]
  - MOBILITY DECREASED [None]
  - FATIGUE [None]
